FAERS Safety Report 23943667 (Version 1)
Quarter: 2024Q2

REPORT INFORMATION
  Report Type: Spontaneous
  Country: TR (occurrence: TR)
  Receive Date: 20240606
  Receipt Date: 20240606
  Transmission Date: 20240716
  Serious: Yes (Other)
  Sender: FDA-Public Use
  Company Number: TR-AMNEAL PHARMACEUTICALS-2024-AMRX-02011

PATIENT
  Age: 57 Year
  Sex: Female

DRUGS (1)
  1. ALENDRONATE SODIUM [Suspect]
     Active Substance: ALENDRONATE SODIUM
     Indication: Osteoporosis
     Dosage: 70 MILLIGRAM, 1 /WEEK
     Route: 065

REACTIONS (1)
  - Polyarthritis [Recovered/Resolved]
